FAERS Safety Report 5158953-2 (Version None)
Quarter: 2006Q4

REPORT INFORMATION
  Report Type: 
  Country: None (occurrence: None)
  Receive Date: 20061128
  Receipt Date: 20061115
  Transmission Date: 20070319
  Serious: Yes (Hospitalization)
  Sender: FDA-Public Use
  Company Number: US-BRISTOL-MYERS SQUIBB COMPANY-13580824

PATIENT
  Age: 78 Year
  Sex: Male

DRUGS (1)
  1. MAXIPIME [Suspect]
     Indication: INFECTION
     Route: 042
     Dates: start: 20061114, end: 20061114

REACTIONS (1)
  - CARDIO-RESPIRATORY ARREST [None]
